FAERS Safety Report 16468867 (Version 7)
Quarter: 2023Q1

REPORT INFORMATION
  Report Type: Spontaneous
  Country: US (occurrence: US)
  Receive Date: 20190624
  Receipt Date: 20230302
  Transmission Date: 20230418
  Serious: Yes (Other)
  Sender: FDA-Public Use
  Company Number: US-PFIZER INC-2019268000

PATIENT
  Age: 72 Year
  Sex: Male

DRUGS (4)
  1. XELJANZ XR [Suspect]
     Active Substance: TOFACITINIB CITRATE
     Indication: Rheumatoid arthritis
     Dosage: 11 MG, 1X/DAY
     Route: 048
     Dates: start: 2012
  2. XELJANZ XR [Suspect]
     Active Substance: TOFACITINIB CITRATE
     Dosage: 11 MG, DAILY
     Route: 058
     Dates: start: 20190522
  3. XELJANZ XR [Suspect]
     Active Substance: TOFACITINIB CITRATE
     Dosage: 11 MG, 1X/DAY
     Route: 048
     Dates: start: 20120101
  4. XELJANZ XR [Suspect]
     Active Substance: TOFACITINIB CITRATE
     Dosage: 11 MG, DAILY
     Route: 048

REACTIONS (12)
  - Cataract [Unknown]
  - Peripheral nerve injury [Recovering/Resolving]
  - Incorrect route of product administration [Unknown]
  - Hypersensitivity [Unknown]
  - Cough [Unknown]
  - Nasopharyngitis [Unknown]
  - Nasal congestion [Unknown]
  - Hypoaesthesia [Unknown]
  - Burning sensation [Unknown]
  - Herpes zoster [Recovering/Resolving]
  - Nerve injury [Recovering/Resolving]
  - Illness [Unknown]

NARRATIVE: CASE EVENT DATE: 20190522
